FAERS Safety Report 14370215 (Version 3)
Quarter: 2018Q1

REPORT INFORMATION
  Report Type: Spontaneous
  Country: JP (occurrence: JP)
  Receive Date: 20180110
  Receipt Date: 20180203
  Transmission Date: 20180509
  Serious: Yes (Life-Threatening, Hospitalization)
  Sender: FDA-Public Use
  Company Number: JP-ROCHE-1675073

PATIENT
  Age: 76 Year
  Sex: Female
  Weight: 42 kg

DRUGS (10)
  1. BACTRAMIN [Concomitant]
     Active Substance: SULFAMETHOXAZOLE\TRIMETHOPRIM
     Route: 048
     Dates: start: 20121030
  2. LANSOPRAZOLE. [Concomitant]
     Active Substance: LANSOPRAZOLE
     Route: 048
     Dates: start: 20141120
  3. LYRICA [Concomitant]
     Active Substance: PREGABALIN
     Route: 048
     Dates: start: 20130624
  4. ALLELOCK [Concomitant]
     Active Substance: OLOPATADINE HYDROCHLORIDE
     Dosage: THE FRACTIONATION DOSE FREQUENCY IS UNCERTAIN. ?DOSE INTERVAL UNCERTAINTY
     Route: 048
     Dates: start: 20121217
  5. ACTEMRA [Suspect]
     Active Substance: TOCILIZUMAB
     Indication: RHEUMATOID ARTHRITIS
     Route: 042
     Dates: start: 20121117, end: 20121117
  6. ACTEMRA [Suspect]
     Active Substance: TOCILIZUMAB
     Dosage: DATE OF MOST RECENT DOSE: 08/OCT/2015
     Route: 041
     Dates: start: 20121217
  7. PREDNISOLONE. [Concomitant]
     Active Substance: PREDNISOLONE
     Route: 048
     Dates: start: 2005
  8. ACTONEL [Concomitant]
     Active Substance: RISEDRONATE SODIUM
     Dosage: THE FRACTIONATION DOSE FREQUENCY IS UNCERTAIN.
     Route: 048
     Dates: start: 20090310
  9. CALONAL [Concomitant]
     Active Substance: ACETAMINOPHEN
     Route: 048
     Dates: start: 20121117
  10. KOLBET [Concomitant]
     Active Substance: IGURATIMOD

REACTIONS (3)
  - Necrotising myositis [Recovered/Resolved]
  - Retroperitoneal abscess [Recovered/Resolved]
  - Necrotising fasciitis [Recovered/Resolved]

NARRATIVE: CASE EVENT DATE: 20151106
